FAERS Safety Report 18040368 (Version 3)
Quarter: 2022Q1

REPORT INFORMATION
  Report Type: Report from Study
  Country: KR (occurrence: KR)
  Receive Date: 20200717
  Receipt Date: 20220125
  Transmission Date: 20220423
  Serious: Yes (Hospitalization)
  Sender: FDA-Public Use
  Company Number: KR-GE HEALTHCARE LIFE SCIENCES-2020CSU002718

PATIENT

DRUGS (2)
  1. VIZAMYL [Suspect]
     Active Substance: FLUTEMETAMOL F-18
     Indication: Positron emission tomogram
     Dosage: 206.83 MBQ (5.59 MCI), ONCE
     Route: 042
     Dates: start: 20200617, end: 20200617
  2. VIZAMYL [Suspect]
     Active Substance: FLUTEMETAMOL F-18
     Indication: Product used for unknown indication

REACTIONS (3)
  - Arthritis bacterial [Unknown]
  - Pain in extremity [Unknown]
  - Peripheral swelling [Unknown]

NARRATIVE: CASE EVENT DATE: 20200617
